FAERS Safety Report 18551372 (Version 1)
Quarter: 2020Q4

REPORT INFORMATION
  Report Type: Spontaneous
  Country: HR (occurrence: HR)
  Receive Date: 20201126
  Receipt Date: 20201126
  Transmission Date: 20210114
  Serious: Yes (Hospitalization)
  Sender: FDA-Public Use
  Company Number: NVSC2020HR310042

PATIENT
  Sex: Male
  Weight: 112 kg

DRUGS (37)
  1. ENTRESTO [Suspect]
     Active Substance: SACUBITRIL\VALSARTAN
     Dosage: 400 MG, QD (200 MG, BID (97/103 MG))
     Route: 065
     Dates: start: 2020
  2. FUROSEMIDE. [Suspect]
     Active Substance: FUROSEMIDE
     Dosage: 80 MG, QD (40 MG, BID)
     Route: 065
     Dates: start: 2016
  3. FUROSEMIDE. [Suspect]
     Active Substance: FUROSEMIDE
     Dosage: 40 MG, BID
     Route: 065
     Dates: start: 2019
  4. ROSUVASTATIN. [Suspect]
     Active Substance: ROSUVASTATIN
     Indication: PRODUCT USED FOR UNKNOWN INDICATION
     Dosage: 1 DF, QD (IN THE EVENING) (2015-2016)
     Route: 065
     Dates: start: 2015, end: 2016
  5. ROSUVASTATIN. [Suspect]
     Active Substance: ROSUVASTATIN
     Dosage: 1 DF, QD (IN THE EVENING)
     Route: 065
     Dates: start: 2016
  6. ROSUVASTATIN. [Suspect]
     Active Substance: ROSUVASTATIN
     Dosage: 1 DF
     Route: 065
     Dates: start: 202009
  7. ELIQUIS [Suspect]
     Active Substance: APIXABAN
     Dosage: 10 MG, QD (5 MILLIGRAM, BID)
     Route: 065
     Dates: start: 2019
  8. ENTRESTO [Suspect]
     Active Substance: SACUBITRIL\VALSARTAN
     Dosage: 400 MG, QD (200 MG, BID (97/103 MG))
     Route: 065
     Dates: start: 2019
  9. AMIODARONE [Suspect]
     Active Substance: AMIODARONE
     Dosage: 1 DF
     Route: 065
     Dates: start: 2018
  10. EPLERENONE. [Suspect]
     Active Substance: EPLERENONE
     Dosage: 50 MG
     Route: 065
     Dates: start: 2019
  11. ENTRESTO [Suspect]
     Active Substance: SACUBITRIL\VALSARTAN
     Indication: PRODUCT USED FOR UNKNOWN INDICATION
     Dosage: 200 MG, QD (100 MG, BID (49/51 MG))
     Route: 065
     Dates: start: 2018
  12. BISOPROLOL [Suspect]
     Active Substance: BISOPROLOL
     Dosage: 10 MG, QD (5 MG, BID)
     Route: 065
     Dates: start: 2016
  13. ROSUVASTATIN. [Suspect]
     Active Substance: ROSUVASTATIN
     Dosage: 1 DF
     Route: 065
     Dates: start: 2019
  14. ROSUVASTATIN. [Suspect]
     Active Substance: ROSUVASTATIN
     Dosage: 1 DF
     Route: 065
     Dates: start: 2020
  15. EPLERENONE. [Suspect]
     Active Substance: EPLERENONE
     Dosage: 50 MG
     Route: 065
     Dates: start: 202009
  16. ELIQUIS [Suspect]
     Active Substance: APIXABAN
     Indication: PRODUCT USED FOR UNKNOWN INDICATION
     Dosage: 10 MG, QD (5 MILLIGRAM, BID)
     Route: 065
     Dates: start: 2016
  17. ELIQUIS [Suspect]
     Active Substance: APIXABAN
     Dosage: 10 MG, QD (5 MILLIGRAM, BID)
     Route: 065
     Dates: start: 2018
  18. ELIQUIS [Suspect]
     Active Substance: APIXABAN
     Dosage: 10 MG, QD (5 MILLIGRAM, BID)
     Route: 065
     Dates: start: 2020
  19. FUROSEMIDE. [Suspect]
     Active Substance: FUROSEMIDE
     Dosage: 40 MG, PRN
     Route: 065
     Dates: start: 2020
  20. BISOPROLOL [Suspect]
     Active Substance: BISOPROLOL
     Dosage: 10 MG, QD (5 MG, BID)
     Route: 065
     Dates: start: 2020
  21. EPLERENONE. [Suspect]
     Active Substance: EPLERENONE
     Dosage: 50 MG
     Route: 065
     Dates: start: 2018
  22. EPLERENONE. [Suspect]
     Active Substance: EPLERENONE
     Dosage: 50 MG
     Route: 065
     Dates: start: 2020
  23. EPLERENONE. [Suspect]
     Active Substance: EPLERENONE
     Indication: PRODUCT USED FOR UNKNOWN INDICATION
     Dosage: 25 MG (2015-2016)
     Route: 065
     Dates: start: 2015, end: 2016
  24. ELIQUIS [Suspect]
     Active Substance: APIXABAN
     Dosage: 10 MG, QD (5 MILLIGRAM, BID)
     Route: 065
     Dates: start: 202009
  25. FUROSEMIDE. [Suspect]
     Active Substance: FUROSEMIDE
     Dosage: 40 MG, PRN
     Route: 065
     Dates: start: 202009
  26. BISOPROLOL [Suspect]
     Active Substance: BISOPROLOL
     Indication: PRODUCT USED FOR UNKNOWN INDICATION
     Dosage: 10 MG, QD 5 MG, BID (2015-2016)
     Route: 065
     Dates: start: 2015, end: 2016
  27. BISOPROLOL [Suspect]
     Active Substance: BISOPROLOL
     Dosage: 10 MG, QD (5 MG, BID)
     Route: 065
     Dates: start: 202009
  28. ROSUVASTATIN. [Suspect]
     Active Substance: ROSUVASTATIN
     Dosage: 1 DF
     Route: 065
     Dates: start: 2018
  29. AMIODARONE [Suspect]
     Active Substance: AMIODARONE
     Dosage: 1 DF
     Route: 065
     Dates: start: 2019
  30. AMIODARONE [Suspect]
     Active Substance: AMIODARONE
     Dosage: 1 DF
     Route: 065
     Dates: start: 2020
  31. EPLERENONE. [Suspect]
     Active Substance: EPLERENONE
     Dosage: 25 MG
     Route: 065
     Dates: start: 2016
  32. FUROSEMIDE. [Suspect]
     Active Substance: FUROSEMIDE
     Indication: PRODUCT USED FOR UNKNOWN INDICATION
     Dosage: 40 MG, QD (2015-2016)
     Route: 065
  33. BISOPROLOL [Suspect]
     Active Substance: BISOPROLOL
     Dosage: 10 MG, QD (5 MG, BID)
     Route: 065
     Dates: start: 2019
  34. ENTRESTO [Suspect]
     Active Substance: SACUBITRIL\VALSARTAN
     Dosage: 400 MG, QD (200 MG, BID (97/103 MG))
     Route: 065
     Dates: start: 202009
  35. FUROSEMIDE. [Suspect]
     Active Substance: FUROSEMIDE
     Dosage: 1000 MG, QD (500 MG, BID (QUARTER OF A TABLET))
     Route: 065
     Dates: start: 2018
  36. AMIODARONE [Suspect]
     Active Substance: AMIODARONE
     Indication: PRODUCT USED FOR UNKNOWN INDICATION
     Dosage: 1 DF, QD (IN THE MORNING)
     Route: 065
     Dates: start: 2016
  37. AMIODARONE [Suspect]
     Active Substance: AMIODARONE
     Dosage: 1 DF
     Route: 065
     Dates: start: 202009

REACTIONS (4)
  - Chest discomfort [Unknown]
  - N-terminal prohormone brain natriuretic peptide increased [Unknown]
  - Atrial tachycardia [Recovered/Resolved]
  - Weight decreased [Unknown]

NARRATIVE: CASE EVENT DATE: 2019
